FAERS Safety Report 9518338 (Version 1)
Quarter: 2013Q3

REPORT INFORMATION
  Report Type: Spontaneous
  Country: US (occurrence: None)
  Receive Date: 20130910
  Receipt Date: 20130910
  Transmission Date: 20140515
  Serious: No
  Sender: FDA-Public Use
  Company Number: None

PATIENT
  Age: 88 Year
  Sex: Male
  Weight: 72.58 kg

DRUGS (1)
  1. METFORMIN HYDROCHLORIDE [Suspect]
     Indication: TYPE 2 DIABETES MELLITUS
     Dosage: ONE TABLET BY MOUNTH, ONCE DAILY, TAKEN BY MOUTH
     Route: 048

REACTIONS (4)
  - Product quality issue [None]
  - Product substitution issue [None]
  - Drug ineffective [None]
  - Blood glucose increased [None]
